FAERS Safety Report 5058227-4 (Version None)
Quarter: 2006Q2

REPORT INFORMATION
  Report Type: 
  Country: None (occurrence: None)
  Receive Date: 20060622
  Receipt Date: 20051221
  Transmission Date: 20061013
  Serious: Yes (Other)
  Sender: FDA-Public Use
  Company Number: US-JNJFOC-20051204903

PATIENT
  Age: 24 Year
  Sex: Female

DRUGS (2)
  1. FENTANYL [Suspect]
     Indication: DRUG USE FOR UNKNOWN INDICATION
     Dosage: INGESTED 4 TABLETS OF HER MOTHER'S MEDICATION
  2. AMITRIPTYLINE HCL [Suspect]
     Indication: DRUG USE FOR UNKNOWN INDICATION
     Dosage: SEE IMAGE

REACTIONS (8)
  - BACK PAIN [None]
  - CONFUSIONAL STATE [None]
  - COORDINATION ABNORMAL [None]
  - DRUG DEPENDENCE [None]
  - DRUG EXPOSURE DURING PREGNANCY [None]
  - DYSARTHRIA [None]
  - FALL [None]
  - TACHYCARDIA [None]
